FAERS Safety Report 9472212 (Version 2)
Quarter: 2013Q4

REPORT INFORMATION
  Report Type: Spontaneous
  Country: JP (occurrence: JP)
  Receive Date: 20130823
  Receipt Date: 20131007
  Transmission Date: 20140711
  Serious: Yes (Other)
  Sender: FDA-Public Use
  Company Number: JP-ASTRAZENECA-2013SE64629

PATIENT
  Age: 72 Year
  Sex: Male

DRUGS (8)
  1. BLOPRESS [Suspect]
     Indication: HYPERTENSION
     Route: 048
     Dates: start: 20130801, end: 20130801
  2. LASIX [Suspect]
     Route: 042
     Dates: start: 20130713
  3. MEXITIL [Concomitant]
     Dates: end: 20130806
  4. HOKUNALIN [Concomitant]
     Dates: start: 20130605
  5. MUCODYNE [Concomitant]
     Dates: start: 20130705
  6. MYSLEE [Concomitant]
     Route: 050
     Dates: start: 20130729
  7. PREDONINE [Concomitant]
     Route: 042
     Dates: start: 20130702
  8. GASPORT [Concomitant]
     Route: 042
     Dates: start: 20130703

REACTIONS (1)
  - Blood pressure systolic decreased [Unknown]
